FAERS Safety Report 6237802-5 (Version None)
Quarter: 2009Q2

REPORT INFORMATION
  Report Type: 
  Country: None (occurrence: None)
  Receive Date: 20090617
  Receipt Date: 20090603
  Transmission Date: 20091009
  Serious: Yes (Hospitalization)
  Sender: FDA-Public Use
  Company Number: MSTR-NO-0906S-0108

PATIENT
  Age: 72 Year
  Sex: Male
  Weight: 43.5 kg

DRUGS (1)
  1. METASTRON [Suspect]
     Indication: METASTATIC PAIN
     Dosage: 88 MBQ, SINGLEDOSE, I.V.
     Route: 042
     Dates: start: 20080930, end: 20080930

REACTIONS (4)
  - CONDITION AGGRAVATED [None]
  - MALIGNANT NEOPLASM PROGRESSION [None]
  - PAIN [None]
  - PROSTATE CANCER METASTATIC [None]
